FAERS Safety Report 16432940 (Version 1)
Quarter: 2019Q2

REPORT INFORMATION
  Report Type: Spontaneous
  Country: US (occurrence: US)
  Receive Date: 20190614
  Receipt Date: 20190614
  Transmission Date: 20190711
  Serious: No
  Sender: FDA-Public Use
  Company Number: US-JNJFOC-20190613285

PATIENT
  Age: 81 Year
  Sex: Male
  Weight: 108.86 kg

DRUGS (5)
  1. BICALUTAMIDE. [Concomitant]
     Active Substance: BICALUTAMIDE
     Indication: PROSTATE CANCER
     Route: 065
  2. XARELTO [Suspect]
     Active Substance: RIVAROXABAN
     Indication: THROMBOSIS
     Route: 048
     Dates: start: 201808, end: 2019
  3. SIMVASTATIN. [Concomitant]
     Active Substance: SIMVASTATIN
     Indication: BLOOD CHOLESTEROL
     Route: 065
  4. XARELTO [Suspect]
     Active Substance: RIVAROXABAN
     Indication: THROMBOSIS
     Route: 048
     Dates: start: 201905
  5. IMIPRAMINE [Concomitant]
     Active Substance: IMIPRAMINE
     Indication: URINARY INCONTINENCE
     Route: 065
     Dates: start: 2019

REACTIONS (2)
  - Hypotension [Unknown]
  - Product dose omission [Unknown]

NARRATIVE: CASE EVENT DATE: 20190610
